FAERS Safety Report 5263652-2 (Version None)
Quarter: 2007Q1

REPORT INFORMATION
  Report Type: 
  Country: None (occurrence: None)
  Receive Date: 20070313
  Receipt Date: 20070305
  Transmission Date: 20070707
  Serious: Yes (Hospitalization)
  Sender: FDA-Public Use
  Company Number: BE-AVENTIS-200711413GDDC

PATIENT
  Age: 38 Year
  Sex: Female
  Weight: 101 kg

DRUGS (5)
  1. ARAVA [Suspect]
     Indication: RHEUMATOID ARTHRITIS
     Route: 048
     Dates: start: 20061130, end: 20070116
  2. METHYLPREDNISOLONE 16MG TAB [Concomitant]
     Indication: RHEUMATOID ARTHRITIS
     Route: 048
     Dates: start: 20060701
  3. LEDERTREXATE                       /00113801/ [Concomitant]
     Indication: RHEUMATOID ARTHRITIS
     Dates: start: 20060701
  4. LEDERTREXATE                       /00113801/ [Concomitant]
     Dates: end: 20061130
  5. ELTHYRONE [Concomitant]
     Dosage: DOSE: UNK

REACTIONS (5)
  - HAEMODIALYSIS [None]
  - INFLUENZA [None]
  - NEPHRITIS INTERSTITIAL [None]
  - PYELONEPHRITIS [None]
  - RENAL FAILURE ACUTE [None]
